FAERS Safety Report 16036479 (Version 1)
Quarter: 2019Q1

REPORT INFORMATION
  Report Type: Spontaneous
  Country: US (occurrence: US)
  Receive Date: 20190305
  Receipt Date: 20190305
  Transmission Date: 20190418
  Serious: No
  Sender: FDA-Public Use
  Company Number: US-ALLERGAN-1900993US

PATIENT
  Age: 73 Year
  Sex: Female

DRUGS (4)
  1. ESTRACE [Suspect]
     Active Substance: ESTRADIOL
     Indication: DYSURIA
  2. ESTRACE [Suspect]
     Active Substance: ESTRADIOL
     Indication: VULVOVAGINAL DISCOMFORT
  3. ESTRACE [Suspect]
     Active Substance: ESTRADIOL
     Indication: DYSURIA
     Dosage: 3 TIMES PER WEEK
     Route: 067
     Dates: start: 201811
  4. ESTRACE [Suspect]
     Active Substance: ESTRADIOL
     Indication: VULVOVAGINAL DISCOMFORT

REACTIONS (6)
  - Off label use [Unknown]
  - Product dose omission [Unknown]
  - Intentional dose omission [Unknown]
  - Product quality issue [Unknown]
  - Expired product administered [Unknown]
  - Product residue present [Unknown]

NARRATIVE: CASE EVENT DATE: 201811
